FAERS Safety Report 18172215 (Version 1)
Quarter: 2020Q3

REPORT INFORMATION
  Report Type: Spontaneous
  Country: US (occurrence: US)
  Receive Date: 20200820
  Receipt Date: 20200820
  Transmission Date: 20201103
  Serious: No
  Sender: FDA-Public Use
  Company Number: US-SA-2020SA218604

PATIENT

DRUGS (9)
  1. DUPIXENT [Suspect]
     Active Substance: DUPILUMAB
     Indication: ASTHMA
     Dosage: 600 MG, 1X
     Route: 058
  2. AMITRIPTYLINE [Concomitant]
     Active Substance: AMITRIPTYLINE
  3. PANTOPRAZOLE [Concomitant]
     Active Substance: PANTOPRAZOLE
  4. GABAPENTIN. [Concomitant]
     Active Substance: GABAPENTIN
  5. ALBUTEROL [SALBUTAMOL] [Concomitant]
     Active Substance: ALBUTEROL
  6. CYANOCOBALAMIN. [Concomitant]
     Active Substance: CYANOCOBALAMIN
  7. METRONIDAZOLE. [Concomitant]
     Active Substance: METRONIDAZOLE
  8. FOLIC ACID. [Concomitant]
     Active Substance: FOLIC ACID
  9. NYSTOP [Concomitant]
     Active Substance: NYSTATIN

REACTIONS (2)
  - Asthma [Not Recovered/Not Resolved]
  - Therapy interrupted [Unknown]
